FAERS Safety Report 6140299-7 (Version None)
Quarter: 2009Q2

REPORT INFORMATION
  Report Type: 
  Country: None (occurrence: None)
  Receive Date: 20090401
  Receipt Date: 20090324
  Transmission Date: 20091009
  Serious: Yes (Hospitalization, Other)
  Sender: FDA-Public Use
  Company Number: PHEH2009US02548

PATIENT
  Sex: Male

DRUGS (2)
  1. GLEEVEC [Suspect]
     Indication: MYELODYSPLASTIC SYNDROME
     Dosage: 400 MG, QD
     Route: 048
     Dates: start: 20081117, end: 20090319
  2. GLEEVEC [Suspect]
     Indication: MYELOFIBROSIS

REACTIONS (6)
  - BRONCHITIS [None]
  - DRUG INEFFECTIVE [None]
  - PLATELET COUNT INCREASED [None]
  - PNEUMONIA [None]
  - RESPIRATORY DISORDER [None]
  - SPLENOMEGALY [None]
